FAERS Safety Report 4944358-3 (Version None)
Quarter: 2006Q1

REPORT INFORMATION
  Report Type: 
  Country: None (occurrence: None)
  Receive Date: 20060315
  Receipt Date: 20050114
  Transmission Date: 20060701
  Serious: Yes (Hospitalization)
  Sender: FDA-Public Use
  Company Number: US-MERCK-0501USA02694

PATIENT
  Age: 62 Year
  Sex: Female
  Weight: 89 kg

DRUGS (1)
  1. VIOXX [Suspect]
     Indication: ARTHRITIS
     Route: 048

REACTIONS (2)
  - ADVERSE EVENT [None]
  - MYOCARDIAL INFARCTION [None]
